FAERS Safety Report 22041219 (Version 2)
Quarter: 2023Q1

REPORT INFORMATION
  Report Type: Spontaneous
  Country: US (occurrence: US)
  Receive Date: 20230227
  Receipt Date: 20230307
  Transmission Date: 20230418
  Serious: Yes (Death, Hospitalization, Other)
  Sender: FDA-Public Use
  Company Number: US-PFIZER INC-202300079730

PATIENT
  Age: 53 Year
  Sex: Female

DRUGS (1)
  1. PAXLOVID [Suspect]
     Active Substance: NIRMATRELVIR\RITONAVIR
     Indication: COVID-19 treatment
     Dosage: 300 MG, 2X/DAY (TAKE ALL 3 SAME TIME FOR MORNING PORTION + TAKE ALL 3 SAME TIME FOR EVENING)
     Dates: start: 20230204, end: 20230207

REACTIONS (7)
  - Hepatic failure [Fatal]
  - Headache [Unknown]
  - Loss of consciousness [Unknown]
  - Illness [Unknown]
  - Head discomfort [Unknown]
  - Dysgeusia [Unknown]
  - Body temperature abnormal [Unknown]

NARRATIVE: CASE EVENT DATE: 20230207
